FAERS Safety Report 19149337 (Version 1)
Quarter: 2021Q2

REPORT INFORMATION
  Report Type: Spontaneous
  Country: NZ (occurrence: NZ)
  Receive Date: 20210416
  Receipt Date: 20210416
  Transmission Date: 20210717
  Serious: Yes (Hospitalization)
  Sender: FDA-Public Use
  Company Number: NZ-GE HEALTHCARE LIFE SCIENCES-2021CSU001504

PATIENT

DRUGS (17)
  1. FOLIC ACID. [Concomitant]
     Active Substance: FOLIC ACID
     Dosage: 5 MG
     Route: 048
     Dates: start: 20201112, end: 20201114
  2. TREXATE [Concomitant]
     Active Substance: METHOTREXATE SODIUM
     Dosage: 10 MG, ONCE WEEKLY
     Route: 048
  3. PARACETAMOL [Concomitant]
     Active Substance: ACETAMINOPHEN
     Dosage: 1 G, FOUR TIMES DAILY
     Route: 048
     Dates: start: 20201112, end: 20201113
  4. FOSAMAX PLUS D [Concomitant]
     Active Substance: ALENDRONATE SODIUM\CHOLECALCIFEROL
     Dosage: 1 TABLET/ WEEK
     Route: 048
  5. FOLIC ACID. [Concomitant]
     Active Substance: FOLIC ACID
     Dosage: 5 MG, QD
     Route: 048
  6. PANADOL [Concomitant]
     Active Substance: ACETAMINOPHEN
     Indication: PYREXIA
  7. PARACETAMOL [Concomitant]
     Active Substance: ACETAMINOPHEN
     Dosage: 1 G IV / PO FOUR TIMES DAILY
     Dates: start: 20201112, end: 20201114
  8. OMNIPAQUE [Suspect]
     Active Substance: IOHEXOL
     Indication: COUGH
  9. OMNIPAQUE [Suspect]
     Active Substance: IOHEXOL
     Indication: MASS
  10. LATANOPROST TEVA [Concomitant]
     Dosage: 1 DROP INTO THE RIGHT EYE, ONCE DAILY
     Route: 047
  11. OMEPRAZOLE ACTAVIS [Concomitant]
     Active Substance: OMEPRAZOLE
     Dosage: 20 MG, QD
     Route: 048
  12. VITAMIN D3 [Concomitant]
     Active Substance: CHOLECALCIFEROL
     Dosage: 1.25 MG, ONCE MONTHLY
  13. OMNIPAQUE [Suspect]
     Active Substance: IOHEXOL
     Indication: PLEURITIC PAIN
  14. AMLODIPINE [Concomitant]
     Active Substance: AMLODIPINE BESYLATE
     Dosage: 10 MG, QD
     Route: 048
  15. PANADOL [Concomitant]
     Active Substance: ACETAMINOPHEN
     Indication: PAIN
     Dosage: 500 MG TIMES 2, PRN
     Route: 048
  16. OMNIPAQUE [Suspect]
     Active Substance: IOHEXOL
     Indication: COMPUTERISED TOMOGRAM THORAX
     Dosage: 90 ML, SINGLE
     Route: 042
     Dates: start: 20201112, end: 20201112
  17. LATANOPROST. [Concomitant]
     Active Substance: LATANOPROST
     Dosage: 1 DROP, QD
     Route: 047
     Dates: start: 20201112, end: 20201114

REACTIONS (6)
  - Pneumonia aspiration [Recovered/Resolved]
  - Anaphylactic reaction [Recovered/Resolved]
  - Seizure [Recovered/Resolved]
  - Rash erythematous [Recovered/Resolved]
  - Loss of consciousness [Recovered/Resolved]
  - Cardiac arrest [Recovered/Resolved]

NARRATIVE: CASE EVENT DATE: 20201112
